FAERS Safety Report 5558220-9 (Version None)
Quarter: 2007Q4

REPORT INFORMATION
  Report Type: 
  Country: None (occurrence: None)
  Receive Date: 20071214
  Receipt Date: 20071204
  Transmission Date: 20080405
  Serious: Yes (Death, Other)
  Sender: FDA-Public Use
  Company Number: US-PFIZER INC-2007085675

PATIENT
  Age: 45 Year
  Sex: Male

DRUGS (4)
  1. GEODON [Suspect]
     Indication: BIPOLAR DISORDER
     Dosage: DAILY DOSE:40MG
     Route: 048
  2. GEODON [Suspect]
     Indication: MAJOR DEPRESSION
  3. CYMBALTA [Suspect]
     Dosage: DAILY DOSE:60MG
  4. WELLBUTRIN [Suspect]
     Dosage: DAILY DOSE:150MG

REACTIONS (3)
  - CARDIAC DISORDER [None]
  - WEIGHT DECREASED [None]
  - WEIGHT INCREASED [None]
